FAERS Safety Report 13670578 (Version 1)
Quarter: 2017Q2

REPORT INFORMATION
  Report Type: Spontaneous
  Country: US (occurrence: US)
  Receive Date: 20170620
  Receipt Date: 20170620
  Transmission Date: 20170830
  Serious: Yes (Hospitalization)
  Sender: FDA-Public Use
  Company Number: US-LANNETT COMPANY, INC.-US-2017LAN000844

PATIENT
  Age: 24 Year
  Sex: Male

DRUGS (20)
  1. STAVUDINE. [Suspect]
     Active Substance: STAVUDINE
     Indication: ANTIRETROVIRAL THERAPY
     Dosage: UNK
     Route: 065
  2. ZIDOVUDINE. [Suspect]
     Active Substance: ZIDOVUDINE
     Indication: ANTIRETROVIRAL THERAPY
     Dosage: UNK
     Route: 065
  3. ZIDOVUDINE. [Suspect]
     Active Substance: ZIDOVUDINE
     Dosage: UNK
     Route: 065
  4. ABACAVIR. [Suspect]
     Active Substance: ABACAVIR
     Dosage: UNK
     Route: 065
  5. DIDANOSINE. [Suspect]
     Active Substance: DIDANOSINE
     Indication: ANTIRETROVIRAL THERAPY
     Dosage: UNK
     Route: 065
  6. EMTRICITABINE [Suspect]
     Active Substance: EMTRICITABINE
     Dosage: UNK
     Route: 065
  7. LAMIVUDINE. [Suspect]
     Active Substance: LAMIVUDINE
     Indication: ANTIRETROVIRAL THERAPY
     Dosage: UNK
     Route: 065
  8. EMTRICITABINE [Suspect]
     Active Substance: EMTRICITABINE
     Indication: ANTIRETROVIRAL THERAPY
     Dosage: UNK
     Route: 065
  9. LAMIVUDINE. [Suspect]
     Active Substance: LAMIVUDINE
     Dosage: UNK
     Route: 065
  10. DIDANOSINE. [Suspect]
     Active Substance: DIDANOSINE
     Dosage: UNK
     Route: 065
  11. NELFINAVIR [Suspect]
     Active Substance: NELFINAVIR
     Dosage: UNK
     Route: 065
  12. ATAZANAVIR [Suspect]
     Active Substance: ATAZANAVIR
     Indication: ANTIRETROVIRAL THERAPY
     Dosage: UNK
     Route: 065
  13. ABACAVIR. [Suspect]
     Active Substance: ABACAVIR
     Indication: ANTIRETROVIRAL THERAPY
     Dosage: UNK
     Route: 065
  14. EFAVIRENZ [Suspect]
     Active Substance: EFAVIRENZ
     Dosage: UNK
     Route: 065
  15. LOPINAVIR AND RITONAVIR [Suspect]
     Active Substance: LOPINAVIR\RITONAVIR
     Dosage: UNK
     Route: 065
  16. NELFINAVIR [Suspect]
     Active Substance: NELFINAVIR
     Indication: ANTIRETROVIRAL THERAPY
     Dosage: UNK
     Route: 065
  17. LOPINAVIR AND RITONAVIR [Suspect]
     Active Substance: LOPINAVIR\RITONAVIR
     Dosage: UNK
     Route: 065
  18. STAVUDINE. [Suspect]
     Active Substance: STAVUDINE
     Dosage: UNK
     Route: 065
  19. EFAVIRENZ [Suspect]
     Active Substance: EFAVIRENZ
     Indication: ANTIRETROVIRAL THERAPY
     Dosage: UNK
     Route: 065
  20. ATAZANAVIR [Suspect]
     Active Substance: ATAZANAVIR
     Dosage: UNK
     Route: 065

REACTIONS (2)
  - Acute myocardial infarction [Recovered/Resolved]
  - Arteriosclerosis [Recovered/Resolved]
